FAERS Safety Report 5831526-1 (Version None)
Quarter: 2008Q3

REPORT INFORMATION
  Report Type: 
  Country: None (occurrence: None)
  Receive Date: 20080801
  Receipt Date: 20080721
  Transmission Date: 20090109
  Serious: Yes (Other)
  Sender: FDA-Public Use
  Company Number: US-MERCK-0807USA03993

PATIENT
  Age: 76 Year
  Sex: Female

DRUGS (3)
  1. TIMOPTIC [Suspect]
     Route: 047
  2. COMBIGAN [Suspect]
     Route: 047
     Dates: start: 20080601
  3. ASPIRIN [Concomitant]
     Route: 065

REACTIONS (10)
  - BLINDNESS UNILATERAL [None]
  - BLOOD PRESSURE INCREASED [None]
  - BLOOD THYROID STIMULATING HORMONE INCREASED [None]
  - CHEST PAIN [None]
  - DYSPNOEA EXERTIONAL [None]
  - HYPOTHYROIDISM [None]
  - IDIOSYNCRATIC DRUG REACTION [None]
  - RETINAL VEIN THROMBOSIS [None]
  - SINUS BRADYCARDIA [None]
  - VISION BLURRED [None]
